FAERS Safety Report 16454707 (Version 22)
Quarter: 2022Q4

REPORT INFORMATION
  Report Type: Report from Study
  Country: US (occurrence: US)
  Receive Date: 20190619
  Receipt Date: 20221206
  Transmission Date: 20230113
  Serious: Yes (Hospitalization, Other)
  Sender: FDA-Public Use
  Company Number: PHEH2019US025339

PATIENT
  Age: 82 Year
  Sex: Male
  Weight: 54.871 kg

DRUGS (21)
  1. TREPROSTINIL [Suspect]
     Active Substance: TREPROSTINIL
     Indication: Pulmonary arterial hypertension
     Dosage: 21 NG/KG/MIN, CONT
     Route: 042
     Dates: start: 20190405
  2. TREPROSTINIL [Suspect]
     Active Substance: TREPROSTINIL
     Dosage: 31 NG/KG/MIN CONT
     Route: 042
  3. TREPROSTINIL [Suspect]
     Active Substance: TREPROSTINIL
     Dosage: 22 NG/KG/MIN, CONT
     Route: 042
  4. TREPROSTINIL [Suspect]
     Active Substance: TREPROSTINIL
     Dosage: 22 NG/KG/MIN, CONT
     Route: 042
  5. TREPROSTINIL [Suspect]
     Active Substance: TREPROSTINIL
     Dosage: 22 NG/KG/MIN, CONT
     Route: 042
  6. TREPROSTINIL [Suspect]
     Active Substance: TREPROSTINIL
     Dosage: 23 NG/KG/MIN, CONT
     Route: 042
  7. TREPROSTINIL [Suspect]
     Active Substance: TREPROSTINIL
     Dosage: 23 NG/KG/MIN, CONT
     Route: 042
  8. TREPROSTINIL [Suspect]
     Active Substance: TREPROSTINIL
     Dosage: 31 NG/KG/MIN, CONT
     Route: 042
  9. TREPROSTINIL [Suspect]
     Active Substance: TREPROSTINIL
     Dosage: 34 NG/KG/MIN, CONT
     Route: 042
  10. TREPROSTINIL [Suspect]
     Active Substance: TREPROSTINIL
     Dosage: 38 NG/KG/MIN, CONT
     Route: 042
  11. TREPROSTINIL [Suspect]
     Active Substance: TREPROSTINIL
     Dosage: 41 NG/KG/MIN, CONT
     Route: 042
  12. TREPROSTINIL [Suspect]
     Active Substance: TREPROSTINIL
     Dosage: 44 NG/KG/MIN, CONT (CONCENTRATION: 2.5 MG/ML)
     Route: 042
  13. TREPROSTINIL [Suspect]
     Active Substance: TREPROSTINIL
     Dosage: 43 NG/KG/MIN (2.5MG/ML)
     Route: 042
  14. TREPROSTINIL [Suspect]
     Active Substance: TREPROSTINIL
     Dosage: 45 NG/KG/MIN (2.5 MG/ML)
     Route: 042
  15. ASPIRIN [Suspect]
     Active Substance: ASPIRIN
     Indication: Product used for unknown indication
     Dosage: UNK
     Route: 065
  16. ASPIRIN [Suspect]
     Active Substance: ASPIRIN
     Dosage: UNK
     Route: 065
  17. LETAIRIS [Concomitant]
     Active Substance: AMBRISENTAN
     Indication: Product used for unknown indication
     Dosage: UNK
     Route: 065
  18. REMODULIN [Concomitant]
     Active Substance: TREPROSTINIL
     Indication: Product used for unknown indication
     Dosage: 21 NG/KG/MIN
     Route: 065
  19. REMODULIN [Concomitant]
     Active Substance: TREPROSTINIL
     Dosage: 22 NG/KG/MIN
     Route: 065
  20. REVATIO [Concomitant]
     Active Substance: SILDENAFIL CITRATE
     Indication: Product used for unknown indication
     Dosage: UNK
     Route: 065
  21. VITAMIN D [Concomitant]
     Active Substance: VITAMIN D NOS
     Indication: Product used for unknown indication
     Dosage: UNK (1000 UNIT)
     Route: 065

REACTIONS (24)
  - Hypoxia [Unknown]
  - Myocardial infarction [Unknown]
  - Haemorrhage [Unknown]
  - Dyspnoea [Unknown]
  - Haematochezia [Unknown]
  - Rectal haemorrhage [Unknown]
  - Pericardial effusion [Unknown]
  - Internal haemorrhage [Unknown]
  - Diverticulitis [Unknown]
  - Cardiac failure [Unknown]
  - Abdominal pain [Unknown]
  - Infection [Unknown]
  - Blood iron decreased [Unknown]
  - Clostridium difficile infection [Unknown]
  - Pyrexia [Unknown]
  - Pneumonia [Unknown]
  - Back pain [Unknown]
  - Pain in extremity [Unknown]
  - Flatulence [Unknown]
  - Dry skin [Unknown]
  - Rash pruritic [Unknown]
  - Fatigue [Unknown]
  - Infusion site haemorrhage [Unknown]
  - Infusion site extravasation [Unknown]

NARRATIVE: CASE EVENT DATE: 20211119
